FAERS Safety Report 13521981 (Version 2)
Quarter: 2017Q2

REPORT INFORMATION
  Report Type: Spontaneous
  Country: US (occurrence: US)
  Receive Date: 20170508
  Receipt Date: 20170508
  Transmission Date: 20170830
  Serious: Yes (Other)
  Sender: FDA-Public Use
  Company Number: ALCN2017US003164

PATIENT
  Age: 75 Year
  Sex: Female
  Weight: 86.17 kg

DRUGS (28)
  1. VANCOMYCIN [Concomitant]
     Active Substance: VANCOMYCIN
     Dosage: UNK UNK, QID
     Route: 065
     Dates: start: 20170316, end: 20170320
  2. PREDILONE [Concomitant]
     Dosage: UNK UNK, QID
     Route: 047
     Dates: start: 20170324, end: 20170404
  3. BETADINE [Suspect]
     Active Substance: POVIDONE-IODINE
     Indication: PREOPERATIVE CARE
     Dosage: UNK UNK, BID
     Route: 047
     Dates: start: 20170313
  4. LOTEMAX [Concomitant]
     Active Substance: LOTEPREDNOL ETABONATE
     Dosage: UNK UNK, QID
     Route: 047
     Dates: start: 20170314
  5. VANCOMYCIN [Concomitant]
     Active Substance: VANCOMYCIN
     Dosage: UNK UNK, Q2H
     Route: 065
     Dates: start: 20170314
  6. CYCLOGYL [Suspect]
     Active Substance: CYCLOPENTOLATE HYDROCHLORIDE
     Indication: PREOPERATIVE CARE
     Dosage: UNK UNK, QD
     Route: 047
     Dates: start: 20170313
  7. PROLENSA [Concomitant]
     Active Substance: BROMFENAC SODIUM
     Indication: PREOPERATIVE CARE
     Dosage: UNK UNK, QD
     Route: 047
     Dates: start: 20170310, end: 20170312
  8. PROLENSA [Concomitant]
     Active Substance: BROMFENAC SODIUM
     Dosage: UNK UNK, QD
     Route: 047
     Dates: start: 20170313
  9. VANCOMYCIN [Concomitant]
     Active Substance: VANCOMYCIN
     Indication: POSTOPERATIVE CARE
     Dosage: UNK UNK, Q2H
     Route: 047
     Dates: start: 20170314
  10. VANCOMYCIN [Concomitant]
     Active Substance: VANCOMYCIN
     Dosage: UNK UNK, QH
     Route: 065
     Dates: start: 20170314, end: 20170316
  11. LOTEMAX [Concomitant]
     Active Substance: LOTEPREDNOL ETABONATE
     Dosage: UNK UNK, Q2H
     Route: 047
     Dates: start: 20170313, end: 20170314
  12. TOBRAMYCIN. [Concomitant]
     Active Substance: TOBRAMYCIN
     Indication: POSTOPERATIVE CARE
     Dosage: UNK UNK, QH
     Route: 047
     Dates: start: 20170314, end: 20170316
  13. TOBRAMYCIN. [Concomitant]
     Active Substance: TOBRAMYCIN
     Dosage: UNK UNK, QID
     Route: 047
     Dates: start: 20170316, end: 20170320
  14. BSS [Suspect]
     Active Substance: CALCIUM CHLORIDE\MAGNESIUM CHLORIDE\POTASSIUM CHLORIDE\SODIUM ACETATE\SODIUM CHLORIDE\SODIUM CITRATE
     Indication: EYE IRRIGATION
     Route: 047
  15. LOTEMAX [Concomitant]
     Active Substance: LOTEPREDNOL ETABONATE
     Indication: PREOPERATIVE CARE
     Dosage: UNK UNK, Q2H
     Route: 047
     Dates: start: 20170310, end: 20170312
  16. ALCAINE [Suspect]
     Active Substance: PROPARACAINE HYDROCHLORIDE
     Indication: PREOPERATIVE CARE
     Dosage: UNK
     Route: 047
     Dates: start: 20170313
  17. SYSTANE (HYPROMELLOSE 2910 (4000 MPA.S)) [Suspect]
     Active Substance: HYPROMELLOSE 2910 (4000 MPA.S)
     Indication: PREOPERATIVE CARE
     Dosage: UNK UNK, QD
     Route: 047
     Dates: start: 20170313
  18. ARTIFICIAL TEARS [Concomitant]
     Active Substance: GLYCERIN\HYPROMELLOSES\POLYETHYLENE GLYCOL 400
     Indication: POSTOPERATIVE CARE
     Dosage: UNK
     Route: 047
     Dates: start: 20170313
  19. ATROP [Concomitant]
     Indication: POSTOPERATIVE CARE
     Dosage: UNK UNK, BID
     Route: 047
     Dates: start: 20170314, end: 20170326
  20. PREDILONE [Concomitant]
     Indication: POSTOPERATIVE CARE
     Dosage: UNK UNK, QH
     Route: 047
     Dates: start: 20170314, end: 20170316
  21. BESIVANCE [Concomitant]
     Active Substance: BESIFLOXACIN
     Indication: PREOPERATIVE CARE
     Dosage: UNK UNK, TID
     Route: 047
     Dates: start: 20170310, end: 20170312
  22. VANCOMYCIN [Concomitant]
     Active Substance: VANCOMYCIN
     Dosage: UNK UNK, BID
     Route: 065
     Dates: start: 20170320, end: 20170324
  23. PAREMYD [Suspect]
     Active Substance: HYDROXYAMPHETAMINE HYDROBROMIDE\TROPICAMIDE
     Indication: PREOPERATIVE CARE
     Dosage: UNK UNK, QD
     Route: 047
     Dates: start: 20170313
  24. BESIVANCE [Concomitant]
     Active Substance: BESIFLOXACIN
     Dosage: UNK UNK, Q2H
     Route: 047
     Dates: start: 20170313, end: 20170314
  25. CEFTAZIDIME. [Concomitant]
     Active Substance: CEFTAZIDIME
     Indication: POSTOPERATIVE CARE
     Dosage: UNK
     Route: 047
     Dates: start: 20170314
  26. TOBRAMYCIN. [Concomitant]
     Active Substance: TOBRAMYCIN
     Dosage: UNK UNK, BID
     Route: 047
     Dates: start: 20170320, end: 20170324
  27. PREDILONE [Concomitant]
     Dosage: UNK UNK, Q2H
     Route: 047
     Dates: start: 20170316, end: 20170324
  28. DUREZOL [Concomitant]
     Active Substance: DIFLUPREDNATE
     Indication: POSTOPERATIVE CARE
     Dosage: UNK UNK, QD
     Route: 047
     Dates: start: 20170404

REACTIONS (6)
  - Corneal oedema [Recovered/Resolved]
  - Eye inflammation [Recovered/Resolved]
  - Hypopyon [Recovered/Resolved]
  - Anterior chamber fibrin [Recovered/Resolved]
  - Endophthalmitis [Recovered/Resolved]
  - Visual impairment [Recovered/Resolved]

NARRATIVE: CASE EVENT DATE: 20170314
